FAERS Safety Report 5005304-X (Version None)
Quarter: 2006Q2

REPORT INFORMATION
  Report Type: 
  Country: None (occurrence: None)
  Receive Date: 20060518
  Receipt Date: 20060517
  Transmission Date: 20061013
  Serious: Yes (Hospitalization)
  Sender: FDA-Public Use
  Company Number: FR-GLAXOSMITHKLINE-B0424129A

PATIENT
  Age: 63 Year
  Sex: Male

DRUGS (1)
  1. VALACYCLOVIR HCL [Suspect]
     Indication: HERPES ZOSTER
     Dosage: 3G PER DAY
     Route: 048
     Dates: start: 20060406, end: 20060410

REACTIONS (6)
  - BLISTER [None]
  - HAEMATOMA [None]
  - HEPATOMEGALY [None]
  - MEGAKARYOCYTES INCREASED [None]
  - PURPURA [None]
  - THROMBOCYTOPENIA [None]
